FAERS Safety Report 6686864-X (Version None)
Quarter: 2010Q2

REPORT INFORMATION
  Report Type: 
  Country: None (occurrence: None)
  Receive Date: 20100419
  Receipt Date: 20100412
  Transmission Date: 20101027
  Serious: Yes (Other)
  Sender: FDA-Public Use
  Company Number: US-BRISTOL-MYERS SQUIBB COMPANY-15064868

PATIENT
  Age: 61 Year
  Sex: Female
  Weight: 70 kg

DRUGS (4)
  1. AVALIDE [Suspect]
     Indication: HYPERTENSION
     Dosage: 1 DF = 300/12.5MG
     Dates: end: 20100316
  2. CHANTIX [Suspect]
     Dates: start: 20100201, end: 20100304
  3. NORVASC [Suspect]
     Indication: HYPERTENSION
     Dates: end: 20100316
  4. CLINDAMYCIN HCL [Suspect]
     Indication: LOCALISED INFECTION
     Dates: start: 20100101

REACTIONS (2)
  - OSTEOMYELITIS [None]
  - RASH [None]
